FAERS Safety Report 8875939 (Version 2)
Quarter: 2013Q1

REPORT INFORMATION
  Report Type: Report from Study
  Country: HU (occurrence: HU)
  Receive Date: 20121023
  Receipt Date: 20130325
  Transmission Date: 20140127
  Serious: Yes (Other)
  Sender: FDA-Public Use
  Company Number: HU-GLAXOSMITHKLINE-B0839247A

PATIENT
  Sex: Female

DRUGS (3)
  1. SERETIDE [Suspect]
     Indication: PRODUCT USED FOR UNKNOWN INDICATION
     Dosage: 250MG TWICE PER DAY
     Route: 065
     Dates: start: 201202, end: 201208
  2. ANTIHYPERTENSIVE [Concomitant]
  3. UNKNOWN DRUG [Concomitant]

REACTIONS (3)
  - Asphyxia [Not Recovered/Not Resolved]
  - Hypersensitivity [Not Recovered/Not Resolved]
  - Oedema [Not Recovered/Not Resolved]
